FAERS Safety Report 24994553 (Version 1)
Quarter: 2025Q1

REPORT INFORMATION
  Report Type: Spontaneous
  Country: US (occurrence: US)
  Receive Date: 20250221
  Receipt Date: 20250221
  Transmission Date: 20250409
  Serious: Yes (Other)
  Sender: AMGEN
  Company Number: US-AMGEN-USASP2025033414

PATIENT
  Age: 63 Year
  Sex: Male
  Weight: 54.78 kg

DRUGS (3)
  1. ENBREL [Suspect]
     Active Substance: ETANERCEPT
     Indication: Product used for unknown indication
     Route: 065
     Dates: start: 20241221
  2. JAKAFI [Suspect]
     Active Substance: RUXOLITINIB
     Indication: Angioimmunoblastic T-cell lymphoma
     Dosage: 10 MILLIGRAM, BID
     Route: 048
  3. FULPHILA [Concomitant]
     Active Substance: PEGFILGRASTIM-JMDB
     Route: 065

REACTIONS (3)
  - Neuropathy peripheral [Recovering/Resolving]
  - Bone pain [Recovering/Resolving]
  - Myalgia [Recovering/Resolving]

NARRATIVE: CASE EVENT DATE: 20241222
